FAERS Safety Report 12246486 (Version 1)
Quarter: 2016Q2

REPORT INFORMATION
  Report Type: Spontaneous
  Country: US (occurrence: US)
  Receive Date: 20160407
  Receipt Date: 20160407
  Transmission Date: 20160815
  Serious: No
  Sender: FDA-Public Use
  Company Number: US-PFIZER INC-2016192617

PATIENT
  Sex: Female

DRUGS (1)
  1. GABAPENTIN. [Suspect]
     Active Substance: GABAPENTIN
     Indication: NEUROPATHY PERIPHERAL
     Dosage: 600 MG, DAILY
     Dates: end: 201604

REACTIONS (5)
  - Drug withdrawal syndrome [Unknown]
  - Influenza like illness [Unknown]
  - Product use issue [Unknown]
  - Nausea [Unknown]
  - Malaise [Unknown]
